FAERS Safety Report 23897391 (Version 5)
Quarter: 2024Q2

REPORT INFORMATION
  Report Type: Spontaneous
  Country: US (occurrence: US)
  Receive Date: 20240524
  Receipt Date: 20240613
  Transmission Date: 20240716
  Serious: No
  Sender: FDA-Public Use
  Company Number: US-002147023-NVSC2024US107339

PATIENT

DRUGS (1)
  1. KESIMPTA [Suspect]
     Active Substance: OFATUMUMAB
     Indication: Product used for unknown indication
     Dosage: UNK
     Route: 065

REACTIONS (7)
  - Influenza [Unknown]
  - Pyrexia [Unknown]
  - Cough [Unknown]
  - Limb discomfort [Unknown]
  - Poor quality sleep [Unknown]
  - Lethargy [Unknown]
  - Fatigue [Unknown]
